FAERS Safety Report 9818248 (Version 1)
Quarter: 2014Q1

REPORT INFORMATION
  Report Type: Spontaneous
  Country: US (occurrence: US)
  Receive Date: 20140115
  Receipt Date: 20140115
  Transmission Date: 20141002
  Serious: No
  Sender: FDA-Public Use
  Company Number: US-BAYER-2014-006727

PATIENT
  Age: 80 Year
  Sex: Female
  Weight: 66.21 kg

DRUGS (2)
  1. ALEVE CAPLET [Suspect]
     Route: 048
  2. LISINOPRIL [Concomitant]
     Dosage: UNK

REACTIONS (1)
  - Extra dose administered [None]
